FAERS Safety Report 8595334 (Version 3)
Quarter: 2012Q4

REPORT INFORMATION
  Report Type: 
  Country: GB (occurrence: GB)
  Receive Date: 20120604
  Receipt Date: 20121101
  Transmission Date: 20130627
  Serious: Yes (Other)
  Sender: FDA-Public Use
  Company Number: GB-ELI_LILLY_AND_COMPANY-GB201205008760

PATIENT
  Age: 23 Year
  Sex: Male

DRUGS (2)
  1. ZYPREXA [Suspect]
     Dosage: 10 mg, qd
     Dates: start: 20120308
  2. ZYPREXA [Suspect]
     Dosage: 15 mg, qd

REACTIONS (6)
  - Loss of consciousness [Unknown]
  - Hypotension [Unknown]
  - Dizziness [Unknown]
  - Blood glucose increased [Unknown]
  - Somnolence [Unknown]
  - Weight increased [Unknown]
